FAERS Safety Report 12352140 (Version 1)
Quarter: 2016Q2

REPORT INFORMATION
  Report Type: Spontaneous
  Country: US (occurrence: US)
  Receive Date: 20160510
  Receipt Date: 20160510
  Transmission Date: 20160815
  Serious: Yes (Other)
  Sender: FDA-Public Use
  Company Number: US-LPDUSPRD-20160397

PATIENT
  Age: 52 Year
  Sex: Female

DRUGS (3)
  1. OMEPRAZOLE. [Concomitant]
     Active Substance: OMEPRAZOLE
     Dosage: DOSE NOT PROVIDED
     Route: 065
  2. VENOFER [Suspect]
     Active Substance: IRON SUCROSE
     Dosage: 100 MG WEEKLY
     Route: 042
  3. EPOGEN [Concomitant]
     Active Substance: ERYTHROPOIETIN
     Dosage: 3000 UNITS THREE TIMES/ WEEK
     Route: 042

REACTIONS (2)
  - Iron overload [Unknown]
  - Porphyria non-acute [Unknown]

NARRATIVE: CASE EVENT DATE: 2015
